FAERS Safety Report 10192544 (Version 2)
Quarter: 2014Q2

REPORT INFORMATION
  Report Type: Spontaneous
  Country: US (occurrence: US)
  Receive Date: 20140523
  Receipt Date: 20140609
  Transmission Date: 20141212
  Serious: No
  Sender: FDA-Public Use
  Company Number: US-009507513-1405USA011597

PATIENT
  Age: 77 Year
  Sex: Female
  Weight: 62.13 kg

DRUGS (5)
  1. OXYTROL FOR WOMEN [Suspect]
     Indication: HYPERTONIC BLADDER
     Dosage: UNK, UNKNOWN
     Route: 062
     Dates: start: 20140503, end: 20140523
  2. ATENOLOL [Concomitant]
     Indication: MITRAL VALVE PROLAPSE
     Dosage: UNK, UNKNOWN
  3. PAXIL [Concomitant]
     Indication: ANXIETY
     Dosage: UNK, UNKNOWN
  4. BONIVA [Concomitant]
     Indication: OSTEOPOROSIS
     Dosage: UNK, UNKNOWN
  5. LOMOTIL (LOPERAMIDE HYDROCHLORIDE) [Concomitant]
     Indication: IRRITABLE BOWEL SYNDROME
     Dosage: UNK, UNKNOWN

REACTIONS (7)
  - Nausea [Recovered/Resolved]
  - Diarrhoea [Recovered/Resolved]
  - Irritable bowel syndrome [Unknown]
  - Erythema [Recovered/Resolved]
  - Somnolence [Unknown]
  - Dizziness [Unknown]
  - Product closure removal difficult [Unknown]
